FAERS Safety Report 16883826 (Version 1)
Quarter: 2019Q4

REPORT INFORMATION
  Report Type: Spontaneous
  Country: US (occurrence: US)
  Receive Date: 20191004
  Receipt Date: 20191004
  Transmission Date: 20200122
  Serious: Yes (Hospitalization, Other)
  Sender: FDA-Public Use
  Company Number: US-ROCHE-2416983

PATIENT
  Age: 41 Year
  Sex: Female
  Weight: 60.93 kg

DRUGS (6)
  1. PERJETA [Suspect]
     Active Substance: PERTUZUMAB
     Indication: HER-2 POSITIVE BREAST CANCER
     Route: 065
     Dates: start: 20190430
  2. HERCEPTIN [Suspect]
     Active Substance: TRASTUZUMAB
     Indication: HER-2 POSITIVE BREAST CANCER
     Dosage: LOADING DOSE
     Route: 065
     Dates: start: 20190430
  3. NEUPOGEN [Concomitant]
     Active Substance: FILGRASTIM
  4. PERJETA [Suspect]
     Active Substance: PERTUZUMAB
     Dosage: MAINTENANCE DOSE EVERY 21 DAYS CURRENTLY FOR A TOTAL OF 7 CYCLES, ONGOING; YES
     Route: 065
  5. HERCEPTIN [Suspect]
     Active Substance: TRASTUZUMAB
     Dosage: MAINTENANCE DOSE, ONGOING: YES
     Route: 065
  6. TAXOL [Concomitant]
     Active Substance: PACLITAXEL
     Indication: HER-2 POSITIVE BREAST CANCER
     Dosage: ONGOING: NO, EVERY WEEK FOR 12 WEEKS
     Route: 065

REACTIONS (6)
  - Heart rate increased [Unknown]
  - Fatigue [Unknown]
  - Pancytopenia [Unknown]
  - Weight decreased [Unknown]
  - Chills [Unknown]
  - Pain [Unknown]

NARRATIVE: CASE EVENT DATE: 20190910
